FAERS Safety Report 5808551-X (Version None)
Quarter: 2008Q3

REPORT INFORMATION
  Report Type: 
  Country: None (occurrence: None)
  Receive Date: 20080709
  Receipt Date: 20080709
  Transmission Date: 20090109
  Serious: Yes (Hospitalization)
  Sender: FDA-Public Use
  Company Number: None

PATIENT
  Age: 86 Year
  Sex: Male

DRUGS (1)
  1. ROSIGLITAZONE [Suspect]
     Indication: DIABETES MELLITUS
     Dosage: 4 MG EVERY DAY PO
     Route: 048
     Dates: start: 20080620, end: 20080706

REACTIONS (5)
  - CONVULSION [None]
  - HYPOGLYCAEMIA [None]
  - INADEQUATE DIET [None]
  - PLEURAL EFFUSION [None]
  - PNEUMONIA ASPIRATION [None]
